FAERS Safety Report 18102469 (Version 4)
Quarter: 2020Q3

REPORT INFORMATION
  Report Type: Spontaneous
  Country: PT (occurrence: PT)
  Receive Date: 20200803
  Receipt Date: 20200927
  Transmission Date: 20201103
  Serious: Yes (Life-Threatening, Hospitalization, Other)
  Sender: FDA-Public Use
  Company Number: PT-AUROBINDO-AUR-APL-2020-037534

PATIENT
  Age: 70 Year
  Sex: Male

DRUGS (7)
  1. AMLODIPINE+VALSARTAN 5MG/160MG [Suspect]
     Active Substance: AMLODIPINE\VALSARTAN
     Indication: HYPERTENSION
     Dosage: 5 MILLIGRAM, ONCE A DAY (5/160 MG ID)
     Route: 065
     Dates: start: 201908
  2. AMLODIPINE+VALSARTAN 5MG/160MG [Suspect]
     Active Substance: AMLODIPINE\VALSARTAN
     Dosage: 1 DOSAGE FORM, ONCE A DAY
     Route: 065
  3. PIPERACILLIN AND TAZOBACTAM [Suspect]
     Active Substance: PIPERACILLIN SODIUM\TAZOBACTAM SODIUM
     Indication: PRODUCT USED FOR UNKNOWN INDICATION
     Dosage: UNK
     Route: 048
  4. ALOPURINOL [Suspect]
     Active Substance: ALLOPURINOL
     Indication: HYPERTENSION
     Dosage: 300 MILLIGRAM, ONCE A DAY
     Route: 065
     Dates: start: 201908
  5. AMLODIPINE+VALSARTAN 5MG/160MG [Suspect]
     Active Substance: AMLODIPINE\VALSARTAN
     Dosage: 160 MILLIGRAM, ONCE A DAY
     Route: 065
  6. FUROSEMIDE. [Suspect]
     Active Substance: FUROSEMIDE
     Indication: ACUTE KIDNEY INJURY
     Dosage: 20 MILLIGRAM, TWO TIMES A DAY
     Route: 065
     Dates: start: 201908, end: 20190829
  7. FUROSEMIDE. [Suspect]
     Active Substance: FUROSEMIDE
     Indication: POLYURIA

REACTIONS (12)
  - Alkalosis [Recovered/Resolved]
  - Hypochloraemia [Recovered/Resolved]
  - Hypernatraemia [Recovered/Resolved]
  - Acute kidney injury [Recovered/Resolved]
  - Ileus paralytic [Recovered/Resolved]
  - Hypovolaemia [Recovered/Resolved]
  - Hyperuricaemia [Recovered/Resolved]
  - Off label use [Unknown]
  - Condition aggravated [Recovered/Resolved]
  - Ileus [Recovered/Resolved]
  - Metabolic alkalosis [Recovered/Resolved]
  - Hypokalaemia [Recovered/Resolved]

NARRATIVE: CASE EVENT DATE: 201908
